APPROVED DRUG PRODUCT: OCTREOTIDE ACETATE (PRESERVATIVE FREE)
Active Ingredient: OCTREOTIDE ACETATE
Strength: EQ 0.1MG BASE/ML
Dosage Form/Route: INJECTABLE;INJECTION
Application: A076313 | Product #003 | TE Code: AP
Applicant: WEST-WARD PHARMACEUTICALS INTERNATIONAL LTD
Approved: Mar 28, 2005 | RLD: No | RS: Yes | Type: RX